FAERS Safety Report 7127776-7 (Version None)
Quarter: 2010Q4

REPORT INFORMATION
  Report Type: 
  Country: None (occurrence: None)
  Receive Date: 20101130
  Receipt Date: 20101119
  Transmission Date: 20110411
  Serious: No
  Sender: FDA-Public Use
  Company Number: US-BIOGENIDEC-2010BI041264

PATIENT
  Age: 56 Year
  Sex: Female

DRUGS (1)
  1. TYSABRI [Suspect]
     Indication: MULTIPLE SCLEROSIS
     Route: 042
     Dates: start: 20090622

REACTIONS (7)
  - DRUG HYPERSENSITIVITY [None]
  - DYSPEPSIA [None]
  - FREQUENT BOWEL MOVEMENTS [None]
  - FUNGAL INFECTION [None]
  - GASTROOESOPHAGEAL REFLUX DISEASE [None]
  - SEBORRHOEIC DERMATITIS [None]
  - URINARY TRACT INFECTION [None]
